FAERS Safety Report 19618387 (Version 1)
Quarter: 2021Q3

REPORT INFORMATION
  Report Type: Spontaneous
  Country: US (occurrence: US)
  Receive Date: 20210727
  Receipt Date: 20210727
  Transmission Date: 20211014
  Serious: No
  Sender: FDA-Public Use
  Company Number: US-ROCHE-2782648

PATIENT
  Age: 30 Year
  Sex: Female

DRUGS (1)
  1. XELODA [Suspect]
     Active Substance: CAPECITABINE
     Indication: NEOPLASM MALIGNANT
     Route: 048
     Dates: start: 202011, end: 20210302

REACTIONS (3)
  - Onychoclasis [Unknown]
  - Skin fissures [Unknown]
  - Nail disorder [Unknown]

NARRATIVE: CASE EVENT DATE: 20210302
